FAERS Safety Report 4715296-6 (Version None)
Quarter: 2005Q3

REPORT INFORMATION
  Report Type: 
  Country: None (occurrence: None)
  Receive Date: 20050715
  Receipt Date: 20050606
  Transmission Date: 20060218
  Serious: Yes (Hospitalization)
  Sender: FDA-Public Use
  Company Number: 200511912FR

PATIENT
  Age: 76 Year
  Sex: Female

DRUGS (19)
  1. CLAFORAN [Suspect]
     Indication: MEDIASTINITIS
     Dates: start: 20040122, end: 20040215
  2. DI-ANTALVIC [Suspect]
     Dates: start: 20040107
  3. VANCOMYCIN [Suspect]
     Indication: MEDIASTINITIS
     Dates: start: 20040120, end: 20040215
  4. MIDAZOLAM HCL [Suspect]
     Dates: start: 20040123, end: 20040221
  5. GENTAMICIN [Suspect]
     Indication: MEDIASTINITIS
     Dates: start: 20040120, end: 20040201
  6. FENTANYL [Suspect]
     Dates: start: 20040123, end: 20040221
  7. NEXIUM [Suspect]
     Dates: start: 20040123, end: 20040221
  8. HEPARIN [Concomitant]
     Dates: start: 20040123, end: 20040221
  9. KARDEGIC [Concomitant]
     Dates: start: 20030101, end: 20040221
  10. FUNGIZONE [Concomitant]
     Dates: start: 20040124, end: 20040214
  11. ACTRAPID [Concomitant]
     Dates: start: 20040124, end: 20040221
  12. OMEPRAZOLE [Concomitant]
     Dates: start: 20040107
  13. SECTRAL [Concomitant]
     Dates: start: 20040107
  14. ZINNAT [Concomitant]
     Dates: start: 20040107
  15. PERFALGAN [Concomitant]
     Dates: start: 20040107
  16. LOVENOX [Concomitant]
     Dates: start: 20040107
  17. FUMAFER [Concomitant]
     Dates: start: 20040107
  18. FOLDINE [Concomitant]
     Dates: start: 20040107
  19. VASTEN [Concomitant]
     Dates: start: 20040107

REACTIONS (6)
  - BLOOD CREATININE INCREASED [None]
  - DRUG RASH WITH EOSINOPHILIA AND SYSTEMIC SYMPTOMS [None]
  - EOSINOPHIL COUNT INCREASED [None]
  - HYPERTHERMIA [None]
  - PYREXIA [None]
  - RASH [None]
